FAERS Safety Report 6251954-2 (Version None)
Quarter: 2009Q2

REPORT INFORMATION
  Report Type: 
  Country: None (occurrence: None)
  Receive Date: 20090630
  Receipt Date: 20050510
  Transmission Date: 20091009
  Serious: Yes (Death, Hospitalization)
  Sender: FDA-Public Use
  Company Number: US-ROCHE-638287

PATIENT
  Sex: Male

DRUGS (40)
  1. ENFUVIRTIDE [Suspect]
     Indication: HIV INFECTION
     Route: 065
     Dates: start: 20031112, end: 20050314
  2. PREZISTA [Concomitant]
     Dates: start: 20031029, end: 20050615
  3. EMTRIVA [Concomitant]
     Dosage: FREQUENCY: QD
     Dates: start: 20031112, end: 20041007
  4. REYATAZ [Concomitant]
     Dosage: FREQUENCY: QD
     Dates: start: 20031112, end: 20050301
  5. VIREAD [Concomitant]
     Dosage: FREQUENCY: QD
     Dates: start: 20031112, end: 20041007
  6. TRUVADA [Concomitant]
     Dosage: FREQUENCY: QD
     Dates: start: 20041007, end: 20050622
  7. TRUVADA [Concomitant]
     Dosage: STOP DATE: 2005
     Dates: start: 20050815
  8. VIDEX EC [Concomitant]
     Dosage: FREQUENCY: QD
     Dates: start: 20050316, end: 20050622
  9. EPIVIR [Concomitant]
     Dates: start: 20050622, end: 20050815
  10. INVIRASE [Concomitant]
     Dates: start: 20050622, end: 20050815
  11. NORVIR [Concomitant]
     Dates: start: 20050622, end: 20050815
  12. NORVIR [Concomitant]
     Dosage: STOP DATE: 2005.
     Dates: start: 20050815
  13. ZERIT [Concomitant]
     Dates: start: 20050622, end: 20050815
  14. KALETRA [Concomitant]
     Dosage: DRUG NAME REPORTED AS KALETRA LIQUID.
     Dates: start: 20050627, end: 20050815
  15. APTIVUS [Concomitant]
     Dates: start: 20050101, end: 20050101
  16. AUGMENTIN XR [Concomitant]
     Dates: start: 20040124, end: 20040709
  17. VFEND [Concomitant]
     Dosage: FRQUENCY: QD
     Dates: start: 20040305, end: 20050101
  18. CIPRO [Concomitant]
     Dates: start: 20050301, end: 20050301
  19. CIPRO [Concomitant]
     Dates: start: 20040407, end: 20040412
  20. CIPRO [Concomitant]
     Dates: start: 20050421, end: 20050101
  21. FLAGYL [Concomitant]
     Dates: start: 20040407, end: 20040417
  22. AVELOX [Concomitant]
     Dosage: FREQUENCY:QD.
     Dates: start: 20040504, end: 20040518
  23. AVELOX [Concomitant]
     Dosage: FREQUENCY: QD
     Dates: start: 20041105, end: 20041205
  24. AUGMENTIN [Concomitant]
     Dates: start: 20041014, end: 20041024
  25. AUGMENTIN [Concomitant]
     Dates: start: 20050301, end: 20050301
  26. KETEK [Concomitant]
     Dosage: FREQUENCY: QD
     Dates: start: 20041021, end: 20041028
  27. OMNICEF [Concomitant]
     Dates: start: 20050218, end: 20050228
  28. LEVAQUIN [Concomitant]
     Dosage: FREQUENCY: QD
     Dates: start: 20050224, end: 20050303
  29. LEVAQUIN [Concomitant]
     Dosage: FREQUENCY: QD
     Dates: start: 20050801, end: 20050901
  30. BIAXIN XL [Concomitant]
     Dosage: FREQUENCY: QD
     Dates: start: 20050415, end: 20050421
  31. MYAMBUTOL [Concomitant]
     Dates: start: 20050421, end: 20050501
  32. MYCOBUTIN [Concomitant]
     Dates: start: 20050421, end: 20050101
  33. SPORANOX [Concomitant]
     Dosage: STOP DATE: 2005
     Dates: start: 20050628
  34. TOBRAMYCIN [Concomitant]
     Dosage: STOP DATE: 2005
     Dates: start: 20050701
  35. CANCIDAS [Concomitant]
     Dates: start: 20050811, end: 20050919
  36. CANCIDAS [Concomitant]
     Dosage: FREQUENCY: QD
     Dates: start: 20050919, end: 20051002
  37. CANCIDAS [Concomitant]
     Dosage: FREQUENCY: QOD
     Dates: start: 20050930, end: 20051019
  38. CANCIDAS [Concomitant]
     Dosage: FREQUENCY: QD STOP DATE: 2005
     Dates: start: 20051019
  39. BACTRIM [Concomitant]
     Dosage: FREQUENCY: QD
     Dates: start: 20050101, end: 20050101
  40. DIFLUCAN [Concomitant]
     Dosage: FREQUENCY: QD
     Dates: end: 20051215

REACTIONS (4)
  - ANAEMIA [None]
  - HIV INFECTION [None]
  - HODGKIN'S DISEASE [None]
  - SEPTIC SHOCK [None]
